FAERS Safety Report 23187282 (Version 1)
Quarter: 2023Q4

REPORT INFORMATION
  Report Type: Spontaneous
  Country: US (occurrence: US)
  Receive Date: 20231115
  Receipt Date: 20231115
  Transmission Date: 20240110
  Serious: Yes (Other)
  Sender: FDA-Public Use
  Company Number: US-BEH-2021138495

PATIENT
  Age: 49 Year
  Sex: Female

DRUGS (3)
  1. IDELVION [Suspect]
     Active Substance: COAGULATION FACTOR IX RECOMBINANT HUMAN
     Dosage: UNK UNK, PRN
     Route: 042
     Dates: start: 202103
  2. IDELVION [Suspect]
     Active Substance: COAGULATION FACTOR IX RECOMBINANT HUMAN
     Dosage: UNK UNK, PRN
     Route: 042
     Dates: start: 202103
  3. VONVENDI [Concomitant]
     Active Substance: VON WILLEBRAND FACTOR (RECOMBINANT)
     Dosage: UNK
     Route: 065
     Dates: start: 201902

REACTIONS (2)
  - Haemarthrosis [Not Recovered/Not Resolved]
  - Arthropathy [Not Recovered/Not Resolved]
